FAERS Safety Report 6141152-5 (Version None)
Quarter: 2009Q2

REPORT INFORMATION
  Report Type: 
  Country: None (occurrence: None)
  Receive Date: 20090402
  Receipt Date: 20090330
  Transmission Date: 20091009
  Serious: Yes (Death)
  Sender: FDA-Public Use
  Company Number: IE-PFIZER INC-2009190618

PATIENT

DRUGS (2)
  1. LIPITOR [Suspect]
     Indication: ISCHAEMIC HEART DISEASE PROPHYLAXIS
     Dosage: 10 MG, UNK
     Route: 048
     Dates: end: 20090227
  2. FUCIDINE CAP [Suspect]
     Indication: POSTOPERATIVE WOUND INFECTION
     Dosage: 500 MG, 3X/DAY
     Route: 048
     Dates: start: 20090218, end: 20090311

REACTIONS (1)
  - RHABDOMYOLYSIS [None]
